FAERS Safety Report 5343775-X (Version None)
Quarter: 2007Q2

REPORT INFORMATION
  Report Type: 
  Country: None (occurrence: None)
  Receive Date: 20070604
  Receipt Date: 20070521
  Transmission Date: 20071010
  Serious: Yes (Hospitalization, Other)
  Sender: FDA-Public Use
  Company Number: FR-SP-2007-01542

PATIENT
  Age: 85 Year
  Sex: Female

DRUGS (2)
  1. BCG  THERAPEUTICS [Suspect]
     Indication: BLADDER CANCER
     Route: 043
  2. BCG  THERAPEUTICS [Suspect]
     Route: 043

REACTIONS (6)
  - CATARACT [None]
  - EYE PAIN [None]
  - OCULAR HYPERAEMIA [None]
  - UVEITIS [None]
  - VISUAL ACUITY REDUCED [None]
  - VITREOUS FLOATERS [None]
